FAERS Safety Report 21951618 (Version 1)
Quarter: 2023Q1

REPORT INFORMATION
  Report Type: Spontaneous
  Country: SI (occurrence: None)
  Receive Date: 20230203
  Receipt Date: 20230203
  Transmission Date: 20230418
  Serious: Yes (Hospitalization, Other)
  Sender: FDA-Public Use
  Company Number: 2023A027648

PATIENT
  Age: 82 Year
  Sex: Male

DRUGS (5)
  1. ROSUVASTATIN [Suspect]
     Active Substance: ROSUVASTATIN
     Route: 048
  2. PERINDOPRIL [Concomitant]
     Active Substance: PERINDOPRIL
  3. APAMIDE [Concomitant]
  4. VERAPAMIL [Concomitant]
     Active Substance: VERAPAMIL HYDROCHLORIDE
  5. FINASTERIDE [Concomitant]
     Active Substance: FINASTERIDE

REACTIONS (10)
  - Syncope [Unknown]
  - Hypotension [Unknown]
  - Vasoplegia syndrome [Unknown]
  - Asthenia [Unknown]
  - Vision blurred [Unknown]
  - Dyspnoea [Unknown]
  - Hypoperfusion [Unknown]
  - Pallor [Unknown]
  - Renal impairment [Unknown]
  - Intentional product misuse [Unknown]
